FAERS Safety Report 5153725-7 (Version None)
Quarter: 2006Q4

REPORT INFORMATION
  Report Type: 
  Country: None (occurrence: None)
  Receive Date: 20061120
  Receipt Date: 20061116
  Transmission Date: 20070319
  Serious: Yes (Hospitalization)
  Sender: FDA-Public Use
  Company Number: US-RB-004351-06

PATIENT
  Sex: Female
  Weight: 69.75 kg

DRUGS (3)
  1. SUBOXONE [Suspect]
     Indication: DRUG DEPENDENCE
     Dosage: MD PRESCRIBED 16 MG/DAY.  PATIENT TAKING 20 MG/DAY.
     Route: 060
     Dates: start: 20061111
  2. GEODON [Concomitant]
     Indication: DRUG USE FOR UNKNOWN INDICATION
     Dosage: UNKNOWN DOSAGE BID. ON MEDICATION AT TIME OF AE.
  3. LEXAPRO [Concomitant]
     Indication: DRUG USE FOR UNKNOWN INDICATION
     Dosage: ON MEDICATION AT TIME OF AE.

REACTIONS (5)
  - ANXIETY [None]
  - DYSPNOEA [None]
  - HEADACHE [None]
  - HEART ALTERNATION [None]
  - MYALGIA [None]
